FAERS Safety Report 17274472 (Version 3)
Quarter: 2020Q3

REPORT INFORMATION
  Report Type: Spontaneous
  Country: US (occurrence: US)
  Receive Date: 20200115
  Receipt Date: 20200730
  Transmission Date: 20201102
  Serious: No
  Sender: FDA-Public Use
  Company Number: US-SA-2020SA007085

PATIENT

DRUGS (1)
  1. DUPIXENT [Suspect]
     Active Substance: DUPILUMAB
     Indication: PRODUCT USED FOR UNKNOWN INDICATION
     Dosage: 300 MG, QOW
     Route: 058
     Dates: start: 201908, end: 202004

REACTIONS (4)
  - Nasopharyngitis [Unknown]
  - Lower limb fracture [Unknown]
  - Tibia fracture [Unknown]
  - Therapy cessation [Unknown]

NARRATIVE: CASE EVENT DATE: 202004
